FAERS Safety Report 17655401 (Version 1)
Quarter: 2020Q2

REPORT INFORMATION
  Report Type: Spontaneous
  Country: US (occurrence: US)
  Receive Date: 20200410
  Receipt Date: 20200410
  Transmission Date: 20200713
  Serious: Yes (Other)
  Sender: FDA-Public Use
  Company Number: US-TEVA-2020-US-1220338

PATIENT
  Age: 70 Year
  Sex: Male

DRUGS (1)
  1. CLONIDINE. [Suspect]
     Active Substance: CLONIDINE
     Route: 062

REACTIONS (4)
  - Application site erythema [Unknown]
  - Blood pressure increased [Unknown]
  - Product adhesion issue [Unknown]
  - Application site swelling [Unknown]
